FAERS Safety Report 24284719 (Version 8)
Quarter: 2024Q4

REPORT INFORMATION
  Report Type: Report from Study
  Country: US (occurrence: US)
  Receive Date: 20240905
  Receipt Date: 20241216
  Transmission Date: 20250115
  Serious: Yes (Life-Threatening, Other)
  Sender: UCB
  Company Number: US-UCBSA-2024029446

PATIENT
  Age: 2 Year
  Sex: Female
  Weight: 11.1 kg

DRUGS (6)
  1. FINTEPLA [Suspect]
     Active Substance: FENFLURAMINE
     Indication: Lennox-Gastaut syndrome
     Dosage: 7.9 MILLIGRAM, ONCE DAILY (QD)
     Dates: start: 20230919
  2. FINTEPLA [Suspect]
     Active Substance: FENFLURAMINE
     Dosage: 3.96 MILLILITER, 2X/DAY (BID)
     Route: 048
     Dates: start: 20230920
  3. FINTEPLA [Suspect]
     Active Substance: FENFLURAMINE
     Dosage: 1.8 MILLILITER, 2X/DAY (BID)
     Route: 048
     Dates: start: 20231019
  4. FINTEPLA [Suspect]
     Active Substance: FENFLURAMINE
     Dosage: 1.8 MILLIGRAM, 2X/DAY (BID)
     Route: 048
     Dates: end: 20240909
  5. EPIDIOLEX [Concomitant]
     Active Substance: CANNABIDIOL
     Indication: Epilepsy
     Dosage: 100 MILLIGRAM, 2X/DAY (BID)
     Route: 048
     Dates: start: 20240301
  6. ONFI [Concomitant]
     Active Substance: CLOBAZAM
     Indication: Epilepsy
     Dosage: 5 MG AT 9AM AND 7.5 MG AT 9PM
     Route: 048
     Dates: start: 20241207

REACTIONS (4)
  - Right ventricular systolic pressure increased [Unknown]
  - Tricuspid valve incompetence [Unknown]
  - Pulmonary arterial hypertension [Unknown]
  - Rash [Unknown]

NARRATIVE: CASE EVENT DATE: 20240819
